FAERS Safety Report 14130771 (Version 2)
Quarter: 2018Q1

REPORT INFORMATION
  Report Type: Report from Study
  Country: US (occurrence: US)
  Receive Date: 20171026
  Receipt Date: 20180123
  Transmission Date: 20180508
  Serious: No
  Sender: FDA-Public Use
  Company Number: US-AMGEN-USASL2017149252

PATIENT
  Age: 62 Year
  Sex: Male

DRUGS (4)
  1. VITAMIN B12 [Concomitant]
     Active Substance: CYANOCOBALAMIN
  2. REPATHA [Suspect]
     Active Substance: EVOLOCUMAB
     Indication: HYPERCHOLESTEROLAEMIA
     Dosage: 140 MG, Q2WK
     Route: 065
     Dates: start: 2017
  3. BABY ASPIRIN [Concomitant]
     Active Substance: ASPIRIN
  4. ISOSORB [Concomitant]
     Dosage: AT NIGHT

REACTIONS (7)
  - Influenza like illness [Unknown]
  - Injection site swelling [Unknown]
  - Injection site bruising [Unknown]
  - Back pain [Not Recovered/Not Resolved]
  - Injection site pain [Unknown]
  - Rhinorrhoea [Unknown]
  - Fatigue [Unknown]

NARRATIVE: CASE EVENT DATE: 2017
